FAERS Safety Report 25381097 (Version 1)
Quarter: 2025Q2

REPORT INFORMATION
  Report Type: Report from Study
  Country: US (occurrence: US)
  Receive Date: 20250530
  Receipt Date: 20250530
  Transmission Date: 20250716
  Serious: Yes (Other)
  Sender: MALLINCKRODT
  Company Number: US-MALLINCKRODT-MNK202501477

PATIENT
  Age: 68 Year
  Sex: Female

DRUGS (3)
  1. CORTICOTROPIN [Suspect]
     Active Substance: CORTICOTROPIN
     Indication: Corneal disorder
     Dosage: 80 UNITS
     Dates: start: 20240613
  2. CORTICOTROPIN [Suspect]
     Active Substance: CORTICOTROPIN
     Indication: Pemphigoid
     Route: 058
     Dates: start: 202502
  3. RITUXAN [Concomitant]
     Active Substance: RITUXIMAB

REACTIONS (10)
  - Blood iron decreased [Unknown]
  - Oesophageal dilatation [Unknown]
  - Feeling abnormal [Recovered/Resolved]
  - Asthenopia [Unknown]
  - Blepharitis [Unknown]
  - Weight increased [Unknown]
  - Headache [Unknown]
  - Fatigue [Unknown]
  - Rash [Recovered/Resolved]
  - Muscular weakness [Unknown]
